FAERS Safety Report 23243769 (Version 1)
Quarter: 2023Q4

REPORT INFORMATION
  Report Type: Spontaneous
  Country: FR (occurrence: FR)
  Receive Date: 20231130
  Receipt Date: 20231130
  Transmission Date: 20240110
  Serious: Yes (Other)
  Sender: FDA-Public Use
  Company Number: FR-SANDOZ-SDZ2023FR060956

PATIENT
  Age: 56 Year
  Sex: Female

DRUGS (7)
  1. BORTEZOMIB [Suspect]
     Active Substance: BORTEZOMIB
     Dosage: RECEIVED ANOTHER 5 VRD CYCLES AS A CONSOLIDATION TREATMENT ROUTE OF ADMIN (FREE TEXT): UNKNOWN ROUTE
     Route: 065
  2. BORTEZOMIB [Suspect]
     Active Substance: BORTEZOMIB
     Indication: Plasma cell myeloma
     Dosage: RECEIVED FOUR VRD CYCLES AS INDUCTION TREATMENT ROUTE OF ADMIN (FREE TEXT): UNKNOWN ROUTE
     Route: 065
  3. DEXAMETHASONE [Suspect]
     Active Substance: DEXAMETHASONE
     Dosage: RECEIVED ANOTHER 5 VRD CYCLES AS A CONSOLIDATION TREATMENT ROUTE OF ADMIN (FREE TEXT): UNKNOWN ROUTE
     Route: 065
  4. DEXAMETHASONE [Suspect]
     Active Substance: DEXAMETHASONE
     Indication: Plasma cell myeloma
     Dosage: RECEIVED FOUR VRD CYCLES AS INDUCTION TREATMENT ROUTE OF ADMIN (FREE TEXT): UNKNOWN ROUTE
     Route: 065
  5. LENALIDOMIDE [Suspect]
     Active Substance: LENALIDOMIDE
     Indication: Plasma cell myeloma
     Dosage: RECEIVED ANOTHER 5 VRD CYCLES AS A CONSOLIDATION TREATMENT ROUTE OF ADMIN (FREE TEXT): UNKNOWN ROUTE
     Route: 065
  6. LENALIDOMIDE [Suspect]
     Active Substance: LENALIDOMIDE
     Dosage: RECEIVED FOUR VRD CYCLES AS INDUCTION TREATMENT ROUTE OF ADMIN (FREE TEXT): UNKNOWN ROUTE
     Route: 065
  7. MELPHALAN [Concomitant]
     Active Substance: MELPHALAN
     Indication: Plasma cell myeloma
     Dosage: VRD CYCLES AS INDUCTION TREATMENT FOLLOWED BY BY AHSCT CONDITIONED WITH 200 MG/M2 ROUTE OF ADMIN (FR
     Route: 065

REACTIONS (2)
  - Cytopenia [Unknown]
  - Therapy partial responder [Unknown]
